FAERS Safety Report 19814035 (Version 1)
Quarter: 2021Q3

REPORT INFORMATION
  Report Type: Spontaneous
  Country: US (occurrence: US)
  Receive Date: 20210910
  Receipt Date: 20210910
  Transmission Date: 20211014
  Serious: No
  Sender: FDA-Public Use
  Company Number: None

PATIENT
  Sex: Male

DRUGS (9)
  1. AMBRISENTAN [Suspect]
     Active Substance: AMBRISENTAN
     Indication: PULMONARY ARTERIAL HYPERTENSION
  2. OMEPRAZOLE. [Concomitant]
     Active Substance: OMEPRAZOLE
  3. ADCIRCA [Concomitant]
     Active Substance: TADALAFIL
  4. ONDANSETRON HYDROCHLORIDE. [Concomitant]
     Active Substance: ONDANSETRON HYDROCHLORIDE
  5. XANAX [Concomitant]
     Active Substance: ALPRAZOLAM
  6. LETAIRIS [Concomitant]
     Active Substance: AMBRISENTAN
  7. TADALAFIL. [Concomitant]
     Active Substance: TADALAFIL
  8. INVEGA [Concomitant]
     Active Substance: PALIPERIDONE
  9. UPTRAVI [Concomitant]
     Active Substance: SELEXIPAG

REACTIONS (3)
  - Malaise [None]
  - Angina pectoris [None]
  - Therapy interrupted [None]
